FAERS Safety Report 5867407-7 (Version None)
Quarter: 2008Q3

REPORT INFORMATION
  Report Type: 
  Country: None (occurrence: None)
  Receive Date: 20080902
  Receipt Date: 20080828
  Transmission Date: 20090109
  Serious: Yes (Other)
  Sender: FDA-Public Use
  Company Number: PHHO2000DE08371

PATIENT
  Sex: Male
  Weight: 99 kg

DRUGS (3)
  1. GLIMEPIRIDE G-GPIR+ [Suspect]
     Dosage: 1 MG
     Route: 048
     Dates: start: 20000802
  2. STARLIX DJN+TAB [Suspect]
     Dosage: 120 MG
  3. GLUCOSE [Concomitant]

REACTIONS (1)
  - VENOUS THROMBOSIS LIMB [None]
